FAERS Safety Report 12795282 (Version 2)
Quarter: 2016Q3

REPORT INFORMATION
  Report Type: Report from Study
  Country: CN (occurrence: CN)
  Receive Date: 20160929
  Receipt Date: 20160930
  Transmission Date: 20161109
  Serious: Yes (Other)
  Sender: FDA-Public Use
  Company Number: PHHY2016CN087774

PATIENT
  Age: 56 Year
  Sex: Male

DRUGS (76)
  1. CICLOSPORIN [Suspect]
     Active Substance: CYCLOSPORINE
     Dosage: 200 MG, QD
     Route: 065
     Dates: start: 20160422, end: 20160427
  2. CICLOSPORIN [Suspect]
     Active Substance: CYCLOSPORINE
     Dosage: 175 MG, QD
     Route: 065
     Dates: start: 20160428, end: 20160504
  3. PREDNISONE. [Suspect]
     Active Substance: PREDNISONE
     Dosage: 10 MG, QD
     Route: 065
     Dates: start: 20160325, end: 20160420
  4. ESOMEPRAZOLE MAGNESIUM. [Concomitant]
     Active Substance: ESOMEPRAZOLE MAGNESIUM
     Indication: GASTROOESOPHAGEAL REFLUX PROPHYLAXIS
     Dosage: 40 MG, QD
     Route: 048
     Dates: start: 20160330, end: 20160401
  5. LANSOPRAZOLE. [Concomitant]
     Active Substance: LANSOPRAZOLE
     Indication: GASTROOESOPHAGEAL REFLUX PROPHYLAXIS
     Dosage: 60 MG, BID
     Route: 042
     Dates: start: 20160319, end: 20160327
  6. POTASSIUM CHLORIDE. [Concomitant]
     Active Substance: POTASSIUM CHLORIDE
     Dosage: 2000 MG, BID
     Route: 048
     Dates: start: 20160326, end: 20160326
  7. PENCICLOVIR. [Concomitant]
     Active Substance: PENCICLOVIR
     Indication: INFECTION PROPHYLAXIS
     Dosage: 500 MG, QD
     Route: 042
     Dates: start: 20160327, end: 20160408
  8. HAEMOCOAGULASE [Concomitant]
     Indication: PROPHYLAXIS
     Dosage: 3 IU, QD
     Route: 042
     Dates: start: 20160319, end: 20160319
  9. CEFOPERAZONE SODIUM AND TAZOBACTAM SODIUM [Concomitant]
     Active Substance: CEFOPERAZONE\TAZOBACTAM SODIUM
     Indication: INFECTION PROPHYLAXIS
     Dosage: 3375 MG, QD
     Route: 042
     Dates: start: 20160319, end: 20160329
  10. TORASEMIDE [Concomitant]
     Active Substance: TORSEMIDE
     Indication: POLYURIA
     Dosage: 20 MG, QD
     Route: 042
     Dates: start: 20160329, end: 20160330
  11. TORASEMIDE [Concomitant]
     Active Substance: TORSEMIDE
     Dosage: 40 MG, QD
     Route: 042
     Dates: start: 20160326, end: 20160326
  12. CICLOSPORIN [Suspect]
     Active Substance: CYCLOSPORINE
     Dosage: 450 MG, QD
     Route: 065
     Dates: start: 20160330, end: 20160330
  13. METHYLPREDNISOLONE. [Suspect]
     Active Substance: METHYLPREDNISOLONE
     Dosage: 500 MG, QD
     Route: 065
     Dates: start: 20160320, end: 20160320
  14. SCOPOLAMINE [Concomitant]
     Active Substance: SCOPOLAMINE
     Indication: PROPHYLAXIS
     Dosage: 0.3 MG, QD
     Route: 030
     Dates: start: 20160319, end: 20160319
  15. DOPAMINE [Concomitant]
     Active Substance: DOPAMINE\DOPAMINE HYDROCHLORIDE
     Indication: BLOOD PRESSURE ABNORMAL
     Dosage: 10 MG, QD
     Route: 042
     Dates: start: 20160319, end: 20160323
  16. HIZON MAGNESIUM SULFATE [Concomitant]
     Indication: CONSTIPATION
     Dosage: 10 ML, QD
     Route: 048
     Dates: start: 20160322, end: 20160322
  17. PENCICLOVIR. [Concomitant]
     Active Substance: PENCICLOVIR
     Dosage: 500 UNK, UNK
     Route: 042
     Dates: start: 20160327
  18. CALCINATE//CALCIUM GLUCONATE [Concomitant]
     Indication: SUPPLEMENTATION THERAPY
     Dosage: 20 ML, QD
     Route: 042
     Dates: start: 20160319, end: 20160319
  19. ALBUMIN HUMAN [Concomitant]
     Active Substance: ALBUMIN HUMAN
     Dosage: 50 ML, BID
     Route: 042
     Dates: start: 20160324, end: 20160327
  20. TORASEMIDE [Concomitant]
     Active Substance: TORSEMIDE
     Dosage: 40 MG, QD
     Route: 042
     Dates: start: 20160322, end: 20160326
  21. MUCOSOLVAN [Concomitant]
     Active Substance: AMBROXOL HYDROCHLORIDE
     Indication: PRODUCTIVE COUGH
     Dosage: 30 MG, QD
     Route: 055
     Dates: start: 20160320, end: 20160325
  22. MOXIFLOXACIN HYDROCHLORIDE. [Concomitant]
     Active Substance: MOXIFLOXACIN HYDROCHLORIDE
     Indication: PROPHYLAXIS
     Dosage: 400 MG, QD
     Route: 042
     Dates: start: 20160319, end: 20160319
  23. MAGNESIUM ISOGLYCYRRHIZINATE [Concomitant]
     Active Substance: MAGNESIUM ISOGLYCYRRHIZINATE
     Indication: PROPHYLAXIS
     Dosage: 200 MG, QD
     Route: 042
     Dates: start: 20160319, end: 20160324
  24. ALISTA//ALPROSTADIL [Concomitant]
     Indication: PROPHYLAXIS
     Dosage: 20 UG, QD
     Route: 042
     Dates: start: 20160319, end: 20160401
  25. FUROSEMIDE. [Concomitant]
     Active Substance: FUROSEMIDE
     Dosage: 100 MG, QD
     Route: 042
     Dates: start: 20160319, end: 20160319
  26. CEFOTAXIME [Concomitant]
     Active Substance: CEFOTAXIME SODIUM
     Indication: INFECTION PROPHYLAXIS
     Dosage: 3375 MG, QD
     Route: 042
     Dates: start: 20160329, end: 20160401
  27. MYFORTIC [Suspect]
     Active Substance: MYCOPHENOLATE SODIUM
     Dosage: 360 MG, QD
     Route: 065
     Dates: start: 20160407
  28. BASILIXIMAB [Suspect]
     Active Substance: BASILIXIMAB
     Indication: IMMUNOSUPPRESSANT DRUG THERAPY
     Dosage: 20 MG, QD
     Route: 065
     Dates: start: 20160319, end: 20160319
  29. RIBOFLAVIN SODIUM PHOSPHATE [Concomitant]
     Indication: SUPPLEMENTATION THERAPY
     Dosage: 40 MG, QD
     Route: 042
     Dates: start: 20160319, end: 20160324
  30. RIBOFLAVIN SODIUM PHOSPHATE [Concomitant]
     Dosage: 40 MG, QD
     Route: 042
     Dates: start: 20160325, end: 20160330
  31. LANSOPRAZOLE. [Concomitant]
     Active Substance: LANSOPRAZOLE
     Dosage: 60 MG, QD
     Route: 042
     Dates: start: 20160328, end: 20160330
  32. MYFORTIC [Suspect]
     Active Substance: MYCOPHENOLATE SODIUM
     Indication: RENAL TRANSPLANT
     Dosage: 1440 MG, QD
     Route: 065
     Dates: start: 20160320, end: 20160320
  33. CICLOSPORIN [Suspect]
     Active Substance: CYCLOSPORINE
     Dosage: 225 MG, QD
     Route: 065
     Dates: start: 20160407, end: 20160420
  34. PREDNISONE. [Suspect]
     Active Substance: PREDNISONE
     Dosage: 5 MG, QD
     Route: 065
     Dates: start: 20160421
  35. METHYLPREDNISOLONE. [Suspect]
     Active Substance: METHYLPREDNISOLONE
     Indication: IMMUNOSUPPRESSANT DRUG THERAPY
     Dosage: 1000 MG, QD
     Route: 065
     Dates: start: 20160319, end: 20160319
  36. ESOMEPRAZOLE MAGNESIUM. [Concomitant]
     Active Substance: ESOMEPRAZOLE MAGNESIUM
     Dosage: 40 MG, QD
     Route: 048
     Dates: start: 20160330
  37. ETAMSYLATE [Concomitant]
     Active Substance: ETHAMSYLATE
     Indication: PROPHYLAXIS
     Dosage: 200 MG, QD
     Route: 042
     Dates: start: 20160319, end: 20160319
  38. POTASSIUM CHLORIDE. [Concomitant]
     Active Substance: POTASSIUM CHLORIDE
     Dosage: 2000 MG, TID
     Route: 048
     Dates: start: 20160325, end: 20160325
  39. MICAFUNGIN SODIUM [Concomitant]
     Active Substance: MICAFUNGIN SODIUM
     Dosage: 50 MG, QD
     Route: 042
     Dates: start: 20160319, end: 20160319
  40. ALBUMIN HUMAN [Concomitant]
     Active Substance: ALBUMIN HUMAN
     Indication: PRODUCT USED FOR UNKNOWN INDICATION
     Dosage: 100 ML, QD
     Route: 042
     Dates: start: 20160319, end: 20160319
  41. AMBROXOL HYDROCHLORIDE [Concomitant]
     Active Substance: AMBROXOL HYDROCHLORIDE
     Indication: PRODUCTIVE COUGH
     Dosage: 210 MG, QD
     Route: 042
     Dates: start: 20160319, end: 20160324
  42. MAGNESIUM ISOGLYCYRRHIZINATE [Concomitant]
     Active Substance: MAGNESIUM ISOGLYCYRRHIZINATE
     Dosage: 200 MG, QD
     Route: 042
     Dates: start: 20160325, end: 20160330
  43. FUROSEMIDE. [Concomitant]
     Active Substance: FUROSEMIDE
     Indication: POLYURIA
     Dosage: 80 MG, QD
     Route: 042
     Dates: start: 20160319, end: 20160321
  44. FUROSEMIDE. [Concomitant]
     Active Substance: FUROSEMIDE
     Indication: PROPHYLAXIS
     Dosage: 40 MG, QD
     Route: 042
     Dates: start: 20160320, end: 20160320
  45. CICLOSPORIN [Suspect]
     Active Substance: CYCLOSPORINE
     Indication: IMMUNOSUPPRESSANT DRUG THERAPY
     Dosage: 450 MG, QD
     Route: 065
     Dates: start: 20160322, end: 20160324
  46. CICLOSPORIN [Suspect]
     Active Substance: CYCLOSPORINE
     Dosage: 150 MG, QD
     Route: 065
     Dates: start: 20160505
  47. PREDNISONE. [Suspect]
     Active Substance: PREDNISONE
     Indication: IMMUNOSUPPRESSANT DRUG THERAPY
     Dosage: 50 MG, QD
     Route: 065
     Dates: start: 20160322, end: 20160322
  48. PAMBA//AMINOMETHYLBENZOIC ACID [Concomitant]
     Indication: PROPHYLAXIS
     Dosage: 600 MG, QD
     Route: 042
     Dates: start: 20160319, end: 20160319
  49. DOPAMINE [Concomitant]
     Active Substance: DOPAMINE\DOPAMINE HYDROCHLORIDE
     Indication: POLYURIA
     Dosage: 10 MG, QD
     Route: 042
     Dates: start: 20160319, end: 20160321
  50. DOPAMINE [Concomitant]
     Active Substance: DOPAMINE\DOPAMINE HYDROCHLORIDE
     Dosage: 200 MG, BID
     Route: 042
     Dates: start: 20160320, end: 20160321
  51. PHENTOLAMINE MESYLATE. [Concomitant]
     Active Substance: PHENTOLAMINE MESYLATE
     Indication: POLYURIA
     Dosage: 10 MG, QD
     Route: 042
     Dates: start: 20160319, end: 20160321
  52. PHOSPHOCREATINE SODIUM [Concomitant]
     Indication: NUTRITIONAL SUPPLEMENTATION
     Dosage: 20 MG, QD
     Route: 042
     Dates: start: 20160319, end: 20160319
  53. PHENOBARBITAL. [Concomitant]
     Active Substance: PHENOBARBITAL
     Indication: PROPHYLAXIS
     Dosage: 100 MG, QD
     Route: 042
     Dates: start: 20160319, end: 20160319
  54. LINEZOLID. [Concomitant]
     Active Substance: LINEZOLID
     Indication: INFECTION PROPHYLAXIS
     Dosage: 60 MG, BID
     Route: 048
     Dates: start: 20160327, end: 20160401
  55. MYFORTIC [Suspect]
     Active Substance: MYCOPHENOLATE SODIUM
     Indication: IMMUNOSUPPRESSANT DRUG THERAPY
     Dosage: 1080 MG, QD
     Route: 065
     Dates: start: 20160321, end: 20160324
  56. MYFORTIC [Suspect]
     Active Substance: MYCOPHENOLATE SODIUM
     Dosage: 720 MG, QD
     Route: 065
     Dates: start: 20160325, end: 20160408
  57. PREDNISONE. [Suspect]
     Active Substance: PREDNISONE
     Dosage: 40 MG, QD
     Route: 065
     Dates: start: 20160323, end: 20160323
  58. ALANYL GLUTAMINE [Concomitant]
     Active Substance: ALANYL GLUTAMINE
     Indication: SUPPLEMENTATION THERAPY
     Dosage: 2000 MG, QD
     Route: 042
     Dates: start: 20160320, end: 20160322
  59. DOPAMINE [Concomitant]
     Active Substance: DOPAMINE\DOPAMINE HYDROCHLORIDE
     Dosage: 200 MG, BID
     Route: 042
     Dates: start: 20160319, end: 20160321
  60. HEPARIN SODIUM. [Concomitant]
     Active Substance: HEPARIN SODIUM
     Indication: PROPHYLAXIS
     Dosage: 1.25 WU, QD
     Route: 042
     Dates: start: 20160319, end: 20160319
  61. PHENTOLAMINE MESYLATE. [Concomitant]
     Active Substance: PHENTOLAMINE MESYLATE
     Dosage: 10 MG, QD
     Route: 042
     Dates: start: 20160319, end: 20160323
  62. SODIUM PHOSPHATE [Concomitant]
     Active Substance: SODIUM PHOSPHATE
     Indication: COLONIC LAVAGE
     Dosage: 130 ML, QD
     Route: 054
     Dates: start: 20160321, end: 20160321
  63. POTASSIUM CHLORIDE. [Concomitant]
     Active Substance: POTASSIUM CHLORIDE
     Indication: MINERAL SUPPLEMENTATION
     Dosage: 2000 MG, BID
     Route: 048
     Dates: start: 20160323, end: 20160324
  64. ALBUMIN HUMAN [Concomitant]
     Active Substance: ALBUMIN HUMAN
     Indication: PROPHYLAXIS
     Dosage: 100 ML, BID
     Route: 042
     Dates: start: 20160319, end: 20160323
  65. VITAMIN K1 [Concomitant]
     Active Substance: PHYTONADIONE
     Indication: PROPHYLAXIS
     Dosage: 20 MG, QD
     Route: 042
     Dates: start: 20160319, end: 20160319
  66. LEVAMLODIPINE BESILATE [Concomitant]
     Active Substance: LEVAMLODIPINE BESYLATE
     Indication: HYPERTENSION
     Dosage: 5 MG, BID
     Route: 048
     Dates: start: 20160404
  67. GLUCOSE [Concomitant]
     Active Substance: DEXTROSE
     Indication: BLOOD POTASSIUM ABNORMAL
  68. PREDNISONE. [Suspect]
     Active Substance: PREDNISONE
     Dosage: 30 MG, QD
     Route: 065
     Dates: start: 20160324, end: 20160324
  69. LINEZOLID. [Concomitant]
     Active Substance: LINEZOLID
     Indication: INFECTION PROPHYLAXIS
     Dosage: 600 MG, BID
     Route: 048
     Dates: start: 20160319, end: 20160327
  70. LINEZOLID. [Concomitant]
     Active Substance: LINEZOLID
     Dosage: 600 MG, BID
     Route: 048
     Dates: start: 20160327, end: 20160327
  71. PHOSPHOCREATINE SODIUM [Concomitant]
     Dosage: 2000 MG, QD
     Route: 042
     Dates: start: 20160320, end: 20160329
  72. INSULIN [Concomitant]
     Active Substance: INSULIN NOS
     Indication: BLOOD POTASSIUM ABNORMAL
     Dosage: 12 IU, QD
     Route: 042
     Dates: start: 20160319, end: 20160320
  73. MICAFUNGIN SODIUM [Concomitant]
     Active Substance: MICAFUNGIN SODIUM
     Indication: INFECTION PROPHYLAXIS
     Dosage: 100 MG, QD
     Route: 042
     Dates: start: 20160319, end: 20160330
  74. AMBROXOL HYDROCHLORIDE [Concomitant]
     Active Substance: AMBROXOL HYDROCHLORIDE
     Dosage: 30 MG, QD
     Route: 055
     Dates: start: 20160320, end: 20160325
  75. FUROSEMIDE. [Concomitant]
     Active Substance: FUROSEMIDE
     Dosage: 80 MG, QD
     Route: 042
     Dates: start: 20160319, end: 20160323
  76. GLUCOSE [Concomitant]
     Active Substance: DEXTROSE
     Indication: BLOOD DISORDER
     Dosage: 60 ML, QD
     Route: 042
     Dates: start: 20160319, end: 20160320

REACTIONS (9)
  - Lymphocyte count decreased [Unknown]
  - Blood creatinine increased [Unknown]
  - Red blood cells urine positive [Unknown]
  - Granulocytopenia [Recovering/Resolving]
  - Diarrhoea [Recovering/Resolving]
  - Anaemia [Recovering/Resolving]
  - Hyperlipidaemia [Recovering/Resolving]
  - Abdominal distension [Recovering/Resolving]
  - Incision site pain [Recovering/Resolving]

NARRATIVE: CASE EVENT DATE: 20160320
